FAERS Safety Report 19001579 (Version 1)
Quarter: 2021Q1

REPORT INFORMATION
  Report Type: Spontaneous
  Country: US (occurrence: US)
  Receive Date: 20210312
  Receipt Date: 20210312
  Transmission Date: 20210420
  Serious: No
  Sender: FDA-Public Use
  Company Number: US-FARMAPROD-202010-1411

PATIENT
  Sex: Female

DRUGS (4)
  1. BESIVANCE [Concomitant]
     Active Substance: BESIFLOXACIN
     Dosage: SUSPENSION
  2. VYZULTA [Concomitant]
     Active Substance: LATANOPROSTENE BUNOD
  3. LATANOPROST. [Concomitant]
     Active Substance: LATANOPROST
  4. OXERVATE [Suspect]
     Active Substance: CENEGERMIN-BKBJ
     Indication: NEUROTROPHIC KERATOPATHY
     Route: 047
     Dates: start: 20200918

REACTIONS (2)
  - Eye pain [Unknown]
  - Headache [Recovered/Resolved]
